FAERS Safety Report 7868119-0 (Version None)
Quarter: 2011Q4

REPORT INFORMATION
  Report Type: 
  Country: None (occurrence: None)
  Receive Date: 20111028
  Receipt Date: 20111021
  Transmission Date: 20120403
  Serious: Yes (Life-Threatening, Hospitalization)
  Sender: FDA-Public Use
  Company Number: US-BAXTER-2011BH032393

PATIENT
  Age: 48 Year
  Sex: Female
  Weight: 66 kg

DRUGS (7)
  1. METFORMIN [Concomitant]
     Indication: PRODUCT USED FOR UNKNOWN INDICATION
     Route: 048
  2. GABAPENTIN [Concomitant]
     Indication: CONVULSION
     Route: 048
  3. LISINOPRIL [Concomitant]
     Indication: PRODUCT USED FOR UNKNOWN INDICATION
     Route: 048
  4. DOBUTAMINE HCL [Suspect]
     Indication: CARDIAC STRESS TEST
     Route: 042
     Dates: start: 20110923, end: 20110923
  5. DOBUTAMINE HCL [Suspect]
     Indication: OFF LABEL USE
     Route: 042
     Dates: start: 20110923, end: 20110923
  6. ATENOLOL [Concomitant]
     Indication: PRODUCT USED FOR UNKNOWN INDICATION
     Route: 048
  7. PHENYTOIN [Suspect]
     Indication: CONVULSION
     Route: 048

REACTIONS (1)
  - CONVULSION [None]
